FAERS Safety Report 8772510 (Version 1)
Quarter: 2012Q4

REPORT INFORMATION
  Report Type: 
  Country: US (occurrence: US)
  Receive Date: 20120905
  Receipt Date: 20120905
  Transmission Date: 20130627
  Serious: No
  Sender: FDA-Public Use
  Company Number: US-B.I. PHARMACEUTICALS,INC./RIDGEFIELD-2012-BP-21133BP

PATIENT
  Sex: Male

DRUGS (1)
  1. MICARDIS [Suspect]
     Dosage: 20 mg
     Route: 048

REACTIONS (1)
  - Stress [Recovered/Resolved]
